FAERS Safety Report 21815829 (Version 2)
Quarter: 2023Q1

REPORT INFORMATION
  Report Type: Report from Study
  Country: NL (occurrence: None)
  Receive Date: 20230104
  Receipt Date: 20230120
  Transmission Date: 20230417
  Serious: No
  Sender: FDA-Public Use
  Company Number: NL-Eisai Medical Research-EC-2022-131142

PATIENT
  Age: 68 Year
  Sex: Male
  Weight: 84.4 kg

DRUGS (11)
  1. LENVATINIB [Suspect]
     Active Substance: LENVATINIB
     Indication: Adenocarcinoma pancreas
     Dosage: STARTING DOSE: 20 MG, FLUCTUATED DOSAGE
     Route: 048
     Dates: start: 20220727, end: 20221028
  2. PEMBROLIZUMAB [Suspect]
     Active Substance: PEMBROLIZUMAB
     Indication: Adenocarcinoma pancreas
     Route: 041
     Dates: start: 20220727, end: 20221129
  3. BELZUTIFAN [Suspect]
     Active Substance: BELZUTIFAN
     Indication: Adenocarcinoma pancreas
     Dosage: STARTING DOSE: 120 MG, FLUCTUATED DOSAGE
     Route: 048
     Dates: start: 20220727, end: 20221129
  4. TINZAPARIN SODIUM [Concomitant]
     Active Substance: TINZAPARIN SODIUM
     Dates: start: 20210802
  5. METOPROLOL [Concomitant]
     Active Substance: METOPROLOL
     Dates: start: 20210802
  6. PANCRELIPASE [Concomitant]
     Active Substance: PANCRELIPASE
     Dates: start: 202103
  7. METFORMIN [Concomitant]
     Active Substance: METFORMIN HYDROCHLORIDE
     Dates: start: 202105
  8. TEMAZEPAM [Concomitant]
     Active Substance: TEMAZEPAM
     Dates: start: 202103
  9. LORAZEPAM [Concomitant]
     Active Substance: LORAZEPAM
     Dates: start: 202103
  10. CODEINE [Concomitant]
     Active Substance: CODEINE
     Dates: start: 20220812
  11. BUDESONIDE [Concomitant]
     Active Substance: BUDESONIDE
     Dates: start: 202205

REACTIONS (1)
  - Immune-mediated hepatitis [Not Recovered/Not Resolved]

NARRATIVE: CASE EVENT DATE: 20221220
